FAERS Safety Report 15832213 (Version 7)
Quarter: 2019Q3

REPORT INFORMATION
  Report Type: Spontaneous
  Country: PL (occurrence: PL)
  Receive Date: 20190116
  Receipt Date: 20190823
  Transmission Date: 20191004
  Serious: Yes (Death, Hospitalization, Other)
  Sender: FDA-Public Use
  Company Number: PL-TAKEDA-2018MPI017131

PATIENT
  Age: 59 Year
  Sex: Male

DRUGS (14)
  1. CIPROFLOXACIN. [Suspect]
     Active Substance: CIPROFLOXACIN
     Indication: ADJUVANT THERAPY
     Dosage: UNK
     Route: 065
  2. MEROPENEM. [Suspect]
     Active Substance: MEROPENEM
     Indication: ADJUVANT THERAPY
     Dosage: UNK
     Route: 065
  3. FLUCONAZOLE. [Suspect]
     Active Substance: FLUCONAZOLE
     Indication: ADJUVANT THERAPY
     Dosage: UNK
     Route: 065
  4. DEXAMETHASONE. [Suspect]
     Active Substance: DEXAMETHASONE
     Indication: WALDENSTROM^S MACROGLOBULINAEMIA
     Dosage: UNK
     Route: 065
  5. LEUKERAN [Concomitant]
     Active Substance: CHLORAMBUCIL
     Indication: WALDENSTROM^S MACROGLOBULINAEMIA
     Dosage: UNK
     Route: 065
  6. CEFEPIME [Suspect]
     Active Substance: CEFEPIME HYDROCHLORIDE
     Indication: ADJUVANT THERAPY
     Dosage: UNK
     Route: 065
  7. THALIDOMIDE [Suspect]
     Active Substance: THALIDOMIDE
     Indication: WALDENSTROM^S MACROGLOBULINAEMIA
     Dosage: UNK
     Route: 065
  8. RITUXIMAB. [Suspect]
     Active Substance: RITUXIMAB
     Indication: WALDENSTROM^S MACROGLOBULINAEMIA
     Dosage: UNK
     Route: 065
  9. ACICLOVIR [Suspect]
     Active Substance: ACYCLOVIR
     Indication: ADJUVANT THERAPY
     Dosage: UNK
     Route: 065
  10. BENDAMUSTINE                       /01263302/ [Suspect]
     Active Substance: BENDAMUSTINE HYDROCHLORIDE
     Indication: WALDENSTROM^S MACROGLOBULINAEMIA
     Dosage: UNK
     Route: 065
  11. TIGECYCLINE. [Suspect]
     Active Substance: TIGECYCLINE
     Indication: ADJUVANT THERAPY
     Dosage: UNK
     Route: 065
  12. BORTEZOMIB. [Suspect]
     Active Substance: BORTEZOMIB
     Indication: WALDENSTROM^S MACROGLOBULINAEMIA
     Dosage: UNK
     Route: 065
  13. AMIKACIN. [Suspect]
     Active Substance: AMIKACIN
     Indication: ADJUVANT THERAPY
     Dosage: UNK
     Route: 065
  14. VANCOMYCIN [Suspect]
     Active Substance: VANCOMYCIN
     Indication: ADJUVANT THERAPY
     Dosage: UNK
     Route: 065

REACTIONS (20)
  - Tenderness [Not Recovered/Not Resolved]
  - Enterococcal infection [Not Recovered/Not Resolved]
  - Blood pressure decreased [Unknown]
  - Waldenstrom^s macroglobulinaemia [Fatal]
  - Palpitations [Unknown]
  - Thrombocytopenia [Unknown]
  - Body temperature increased [Not Recovered/Not Resolved]
  - Asthenia [Unknown]
  - Off label use [Unknown]
  - Anaemia [Unknown]
  - Weight decreased [Unknown]
  - Septic shock [Fatal]
  - Cachexia [Not Recovered/Not Resolved]
  - Infection [Fatal]
  - Dysphagia [Not Recovered/Not Resolved]
  - Drug ineffective [Unknown]
  - General physical condition abnormal [Unknown]
  - Abdominal pain upper [Unknown]
  - Product use in unapproved indication [Unknown]
  - Inflammatory marker increased [Fatal]

NARRATIVE: CASE EVENT DATE: 2017
